FAERS Safety Report 14620159 (Version 3)
Quarter: 2018Q2

REPORT INFORMATION
  Report Type: Spontaneous
  Country: US (occurrence: US)
  Receive Date: 20180309
  Receipt Date: 20180412
  Transmission Date: 20180711
  Serious: No
  Sender: FDA-Public Use
  Company Number: US-JNJFOC-20180208140

PATIENT
  Sex: Male

DRUGS (14)
  1. TREMFYA [Suspect]
     Active Substance: GUSELKUMAB
     Indication: PSORIASIS
     Dosage: 100 MG/ML, EVERY MONTH, THEN EVERY 2 MONTHS
     Route: 058
  2. ENSTILAR [Concomitant]
     Active Substance: BETAMETHASONE DIPROPIONATE\CALCIPOTRIENE HYDRATE
     Dosage: 1 APPLICATOR TWICE A DAY
     Route: 061
  3. FLUOCINONIDE. [Concomitant]
     Active Substance: FLUOCINONIDE
     Dosage: 1 APPLICATOR TWICE A DAY AS NEEDED TOPICALLY, DO NOT USE FOR MORE THAN 2 STRAIGHT WEEKS
     Route: 061
  4. CLOBETASOL [Concomitant]
     Active Substance: CLOBETASOL
     Dosage: 1 APPLICATION TWICE A DAY AS NEEDED FOR TWO WEEKS ON, THEN ONE WEEK OFF
     Route: 061
  5. ENALAPRIL MALEATE. [Concomitant]
     Active Substance: ENALAPRIL MALEATE
  6. TACLONEX [Concomitant]
     Active Substance: BETAMETHASONE DIPROPIONATE\CALCIPOTRIENE\CALCIPOTRIENE HYDRATE
     Dosage: 1 APPLICATOR TWICE A DAY AS NEEDED TOPICALLY DO NOT USE FOR MORE THAN 2 WEEKS STRAIGHT
     Route: 061
  7. METHOTREXATE SODIUM. [Concomitant]
     Active Substance: METHOTREXATE SODIUM
     Dosage: 5 TABLETS BY MOUTH EVERY FRIDAY
     Route: 048
  8. METHOTREXATE SODIUM. [Concomitant]
     Active Substance: METHOTREXATE SODIUM
     Dosage: TAKE THREE TABLETS BY MOUTH EVERY FRIDAY
     Route: 048
  9. FOLIC ACID. [Concomitant]
     Active Substance: FOLIC ACID
     Dosage: TAKE ONE TABLET DAILY EXCEPT ON FRIDAY
     Route: 048
  10. OTEZLA [Concomitant]
     Active Substance: APREMILAST
     Route: 048
  11. CALCIPOTRIENE. [Concomitant]
     Active Substance: CALCIPOTRIENE
     Dosage: 1 APPLICATOR TWICE A DAY
     Route: 061
  12. ASPIRIN. [Concomitant]
     Active Substance: ASPIRIN
  13. CLOBETASOL [Concomitant]
     Active Substance: CLOBETASOL
     Dosage: 1 APPLICATOR TWICE A DAY AS NEEDED FOR TWO WEEKS
     Route: 061
  14. COSENTYX [Concomitant]
     Active Substance: SECUKINUMAB
     Dosage: 150 MG/ML, 2 SYRINGES
     Route: 058

REACTIONS (1)
  - Psoriasis [Unknown]
